FAERS Safety Report 4972472-5 (Version None)
Quarter: 2006Q2

REPORT INFORMATION
  Report Type: 
  Country: None (occurrence: None)
  Receive Date: 20060413
  Receipt Date: 20051017
  Transmission Date: 20061013
  Serious: Yes (Death, Hospitalization, Other)
  Sender: FDA-Public Use
  Company Number: US-MERCK-0510USA07803

PATIENT
  Age: 98 Year
  Sex: Female

DRUGS (2)
  1. VIOXX [Suspect]
     Route: 048
     Dates: start: 19990601, end: 20001201
  2. CELEBREX [Concomitant]
     Route: 065
     Dates: start: 19990301, end: 20020201

REACTIONS (16)
  - ANHEDONIA [None]
  - ANXIETY [None]
  - ARTHROPATHY [None]
  - ASTHENIA [None]
  - CARDIAC DISORDER [None]
  - CARDIAC FAILURE CONGESTIVE [None]
  - CAROTID ARTERY DISEASE [None]
  - CHEST PAIN [None]
  - DEMENTIA ALZHEIMER'S TYPE [None]
  - DEPRESSION [None]
  - DYSPNOEA [None]
  - EMOTIONAL DISORDER [None]
  - JOINT SWELLING [None]
  - MYOCARDIAL INFARCTION [None]
  - POST-TRAUMATIC STRESS DISORDER [None]
  - RENAL FAILURE CHRONIC [None]
